FAERS Safety Report 4977033-X (Version None)
Quarter: 2006Q2

REPORT INFORMATION
  Report Type: 
  Country: None (occurrence: None)
  Receive Date: 20060419
  Receipt Date: 20060411
  Transmission Date: 20061013
  Serious: Yes (Hospitalization)
  Sender: FDA-Public Use
  Company Number: US-JNJFOC-20060303848

PATIENT
  Sex: Female
  Weight: 54.43 kg

DRUGS (8)
  1. FENTANYL TRANSDERMAL SYSTEM [Suspect]
     Indication: CANCER PAIN
     Route: 062
     Dates: start: 20060213
  2. MORPHINE ELIXIR [Concomitant]
     Indication: PAIN
     Dosage: 20 MG/5CCS, 5 TO 10 CCS PER TUBE EVERY THREE HOURS AS NEED FOR PAIN
  3. BENEDRYL [Concomitant]
     Dosage: 90 MINUTES PRIOR TO AMIFOSTINE
  4. TYLENOL (CAPLET) [Concomitant]
     Dosage: 90 MINUTES PRIOR TO AMIFOSTINE
  5. ETHYOL [Concomitant]
     Dosage: 30 MINUTES PRIOR TO X-RAY THERAPY (XRT)
     Route: 058
  6. PHENERGAN HCL [Concomitant]
     Dosage: TO BE TAKEN 90 MINUTES PRIOR TO AMIFOSTINE
  7. PAXIL [Concomitant]
  8. KLONOPIN [Concomitant]

REACTIONS (2)
  - HYPOXIA [None]
  - UNRESPONSIVE TO VERBAL STIMULI [None]
